FAERS Safety Report 25242387 (Version 1)
Quarter: 2025Q2

REPORT INFORMATION
  Report Type: Spontaneous
  Country: ES (occurrence: ES)
  Receive Date: 20250427
  Receipt Date: 20250427
  Transmission Date: 20250717
  Serious: Yes (Hospitalization)
  Sender: AUROBINDO
  Company Number: ES-TEVA-VS-3321523

PATIENT
  Age: 49 Year
  Sex: Female
  Weight: 72.8 kg

DRUGS (11)
  1. LORAZEPAM [Suspect]
     Active Substance: LORAZEPAM
     Indication: Product used for unknown indication
     Route: 065
     Dates: start: 20250320
  2. TRAMADOL [Suspect]
     Active Substance: TRAMADOL
     Indication: Product used for unknown indication
     Route: 065
     Dates: start: 20250320
  3. SIGVOTATUG VEDOTIN [Suspect]
     Active Substance: SIGVOTATUG VEDOTIN
     Indication: Lung neoplasm malignant
     Route: 042
     Dates: start: 20250325, end: 20250325
  4. LORMETAZEPAM [Suspect]
     Active Substance: LORMETAZEPAM
     Indication: Prophylaxis
     Dosage: 2 MILLIGRAM, ONCE A DAY
     Route: 048
     Dates: start: 20230609
  5. FAMOTIDINE [Concomitant]
     Active Substance: FAMOTIDINE
     Indication: Prophylaxis
     Route: 048
     Dates: start: 20241125
  6. MOVICOL [Concomitant]
     Active Substance: POLYETHYLENE GLYCOL 3350\POTASSIUM CHLORIDE\SODIUM BICARBONATE\SODIUM CHLORIDE
     Indication: Constipation prophylaxis
     Route: 048
     Dates: start: 20240224
  7. VENLAFAXINE [Concomitant]
     Active Substance: VENLAFAXINE HYDROCHLORIDE
     Indication: Prophylaxis
     Route: 048
     Dates: start: 20241125
  8. NALOXONE HYDROCHLORIDE\OXYCODONE HYDROCHLORIDE [Concomitant]
     Active Substance: NALOXONE HYDROCHLORIDE\OXYCODONE HYDROCHLORIDE
     Indication: Sciatica
     Route: 048
     Dates: start: 20241223
  9. OXYCODONE HYDROCHLORIDE [Concomitant]
     Active Substance: OXYCODONE HYDROCHLORIDE
     Indication: Sciatica
     Route: 048
     Dates: start: 20241125
  10. METAMIZOLE [Concomitant]
     Active Substance: METAMIZOLE
     Indication: Sciatica
     Route: 048
     Dates: start: 20241115
  11. ACETAMINOPHEN [Concomitant]
     Active Substance: ACETAMINOPHEN
     Indication: Sciatica
     Route: 048
     Dates: start: 20241115

REACTIONS (1)
  - Toxicity to various agents [Not Recovered/Not Resolved]

NARRATIVE: CASE EVENT DATE: 20250403
